FAERS Safety Report 7058914-2 (Version None)
Quarter: 2010Q4

REPORT INFORMATION
  Report Type: 
  Country: None (occurrence: None)
  Receive Date: 20101023
  Receipt Date: 20101021
  Transmission Date: 20110411
  Serious: Yes (Other)
  Sender: FDA-Public Use
  Company Number: US-WYE-H15557310

PATIENT
  Sex: Female
  Weight: 54.48 kg

DRUGS (6)
  1. EFFEXOR [Suspect]
     Indication: DEPRESSION
     Dosage: UNKNOWN
     Dates: end: 20100101
  2. CIMICIFUGA [Concomitant]
     Dosage: UNKNOWN
  3. ACICLOVIR [Concomitant]
     Dosage: UNKNOWN
  4. VITAMINS [Concomitant]
     Dosage: UNKNOWN
  5. LAMICTAL [Suspect]
     Dosage: UNKNOWN
  6. ARMOUR THYROID [Concomitant]
     Dosage: UNKNOWN

REACTIONS (6)
  - DIZZINESS [None]
  - DRUG WITHDRAWAL SYNDROME [None]
  - HYPOTENSION [None]
  - NERVOUSNESS [None]
  - SUICIDAL BEHAVIOUR [None]
  - TREMOR [None]
